FAERS Safety Report 17782495 (Version 1)
Quarter: 2020Q2

REPORT INFORMATION
  Report Type: Spontaneous
  Country: DE (occurrence: DE)
  Receive Date: 20200514
  Receipt Date: 20200514
  Transmission Date: 20200714
  Serious: Yes (Hospitalization)
  Sender: FDA-Public Use
  Company Number: DE-TEVA-2020-DE-1234759

PATIENT
  Age: 33 Year
  Sex: Female

DRUGS (9)
  1. PREDNISOLON [Suspect]
     Active Substance: PREDNISOLONE
     Dosage: 10 MILLIGRAM DAILY; 0-0-1-0
  2. PROGESTAN 100MG [Suspect]
     Active Substance: PROGESTERONE
     Dosage: 100 MILLIGRAM DAILY; 100 MG, 1-0-1-0
  3. ACETYLSALICYLSAURE [Concomitant]
     Active Substance: ASPIRIN
     Dosage: 100 MILLIGRAM DAILY; 1-0-0-0
  4. DOXYCYCLIN AL 200 [DOXYCYCLINE MONOHYDRATE] [Suspect]
     Active Substance: DOXYCYCLINE
     Dosage: 200 MILLIGRAM DAILY; 1-0-0-0
  5. SERTRALINE [Suspect]
     Active Substance: SERTRALINE HYDROCHLORIDE
     Dosage: 50 MILLIGRAM DAILY; 0-0-1-0
  6. PROGYNOVA [ESTRADIOL VALERATE] [Suspect]
     Active Substance: ESTRADIOL VALERATE
     Dosage: 84 MILLIGRAM DAILY; 21 MG, 1-1-1-1
  7. PROLUTEX [Suspect]
     Active Substance: PROGESTERONE
     Dosage: 25 MILLIGRAM DAILY; 1-0-0-0
  8. DEKRISTOL 20000I.E. [Concomitant]
     Dosage: 20.000 IE, ON MONDAY
  9. FOLSAN [Concomitant]
     Active Substance: FOLIC ACID
     Dosage: 5 MILLIGRAM DAILY; 1-0-0-0

REACTIONS (3)
  - Syncope [Unknown]
  - Vertigo [Unknown]
  - Muscular weakness [Unknown]
